FAERS Safety Report 5898467-5 (Version None)
Quarter: 2008Q3

REPORT INFORMATION
  Report Type: 
  Country: None (occurrence: None)
  Receive Date: 20080925
  Receipt Date: 20071217
  Transmission Date: 20090109
  Serious: No
  Sender: FDA-Public Use
  Company Number: A0695386A

PATIENT
  Age: 69 Year
  Sex: Male

DRUGS (8)
  1. WELLBUTRIN XL [Suspect]
     Indication: DEPRESSION
     Dosage: 150MG PER DAY
     Route: 048
     Dates: start: 20061201
  2. COUMADIN [Concomitant]
  3. FLECAINIDE ACETATE [Concomitant]
  4. HYDROCHLOROTHIAZIDE [Concomitant]
  5. TERAZOSIN HCL [Concomitant]
  6. POTASSIUM CHLORIDE [Concomitant]
  7. TRICOR [Concomitant]
  8. VITAMIN B-12 [Concomitant]

REACTIONS (4)
  - DEPRESSION [None]
  - DRUG INEFFECTIVE [None]
  - IRRITABILITY [None]
  - PHARMACEUTICAL PRODUCT COMPLAINT [None]
